FAERS Safety Report 12257387 (Version 2)
Quarter: 2016Q3

REPORT INFORMATION
  Report Type: Report from Study
  Country: DE (occurrence: DE)
  Receive Date: 20160412
  Receipt Date: 20160707
  Transmission Date: 20161109
  Serious: Yes (Death, Hospitalization, Other)
  Sender: FDA-Public Use
  Company Number: DE-BRISTOL-MYERS SQUIBB COMPANY-BMS-2016-027225

PATIENT
  Age: 9 Decade
  Sex: Male
  Weight: 112 kg

DRUGS (1)
  1. APIXABAN [Suspect]
     Active Substance: APIXABAN
     Indication: CEREBROVASCULAR ACCIDENT PROPHYLAXIS
     Dosage: 5 MG, BID
     Route: 048
     Dates: start: 20130704

REACTIONS (7)
  - Ischaemic cardiomyopathy [Fatal]
  - Silicosis [Fatal]
  - Coronary artery disease [Fatal]
  - Renal failure [Fatal]
  - Aspiration pleural cavity [Unknown]
  - Rectal haemorrhage [Unknown]
  - Haemothorax [Unknown]

NARRATIVE: CASE EVENT DATE: 20160115
